FAERS Safety Report 5284631-5 (Version None)
Quarter: 2007Q2

REPORT INFORMATION
  Report Type: 
  Country: None (occurrence: None)
  Receive Date: 20070403
  Receipt Date: 20070321
  Transmission Date: 20071010
  Serious: Yes (Hospitalization)
  Sender: FDA-Public Use
  Company Number: FR-ELI_LILLY_AND_COMPANY-FR200703004594

PATIENT
  Age: 75 Year
  Sex: Female

DRUGS (6)
  1. FORTEO [Suspect]
     Indication: OSTEOPOROSIS
     Dosage: 20 UG, DAILY (1/D)
     Route: 058
     Dates: start: 20060804, end: 20070214
  2. TRIATEC [Concomitant]
     Dosage: 5 MG, UNK
  3. SOTALOL HCL [Concomitant]
     Dosage: 80 MG, UNK
  4. AMLOR [Concomitant]
     Dosage: 5 MG, UNK
  5. KARDEGIC [Concomitant]
     Dosage: 75 MG, UNK
  6. PREVISCAN [Concomitant]
     Dosage: 0.5 D/F, DAILY (1/D)

REACTIONS (2)
  - ARRHYTHMIA [None]
  - POST PROCEDURAL HAEMATOMA [None]
